FAERS Safety Report 10589633 (Version 1)
Quarter: 2014Q4

REPORT INFORMATION
  Report Type: Spontaneous
  Country: TR (occurrence: None)
  Receive Date: 20141114
  Receipt Date: 20141114
  Transmission Date: 20150529
  Serious: Yes (Death, Hospitalization, Other)
  Sender: FDA-Public Use
  Company Number: TR-ZYDUS-005504

PATIENT
  Age: 69 Year
  Sex: Female

DRUGS (1)
  1. AMIODARONE (AMIODARONE) [Suspect]
     Active Substance: AMIODARONE
     Indication: ATRIAL FIBRILLATION
     Dosage: 1.0DAYS
     Route: 048

REACTIONS (16)
  - Hepatitis toxic [None]
  - Lethargy [None]
  - Bradycardia [None]
  - Dyspnoea [None]
  - Hepatic enzyme increased [None]
  - Hepatomegaly [None]
  - Hypotension [None]
  - International normalised ratio increased [None]
  - Blood bilirubin increased [None]
  - Confusional state [None]
  - Overdose [None]
  - Splenomegaly [None]
  - Computerised tomogram abnormal [None]
  - Loss of consciousness [None]
  - Multi-organ failure [None]
  - Decreased appetite [None]
